FAERS Safety Report 18275570 (Version 2)
Quarter: 2020Q4

REPORT INFORMATION
  Report Type: Report from Study
  Country: US (occurrence: US)
  Receive Date: 20200916
  Receipt Date: 20201001
  Transmission Date: 20210113
  Serious: Yes (Hospitalization)
  Sender: FDA-Public Use
  Company Number: US-JNJFOC-A-NJ2017-161267

PATIENT
  Age: 70 Year
  Sex: Female
  Weight: 69.46 kg

DRUGS (8)
  1. EPOPROSTENOL SODIUM. [Suspect]
     Active Substance: EPOPROSTENOL SODIUM
     Dosage: 10 NG/KG, PER MIN
     Route: 042
  2. EPOPROSTENOL SODIUM. [Suspect]
     Active Substance: EPOPROSTENOL SODIUM
     Dosage: 13 NG/KG, PER MIN
     Route: 042
  3. EPOPROSTENOL SODIUM. [Suspect]
     Active Substance: EPOPROSTENOL SODIUM
     Dosage: 23 NG/KG, PER MIN
     Route: 042
  4. EPOPROSTENOL SODIUM. [Suspect]
     Active Substance: EPOPROSTENOL SODIUM
     Dosage: 42 NG/KG, PER MIN
     Route: 042
  5. EPOPROSTENOL SODIUM. [Suspect]
     Active Substance: EPOPROSTENOL SODIUM
     Indication: PULMONARY HYPERTENSION
     Dosage: 26.5 NG/KG, PER MIN
     Route: 042
  6. TADALAFIL. [Suspect]
     Active Substance: TADALAFIL
     Indication: PRODUCT USED FOR UNKNOWN INDICATION
     Route: 065
  7. SILDENAFIL CITRATE. [Concomitant]
     Active Substance: SILDENAFIL CITRATE
  8. EPOPROSTENOL SODIUM. [Suspect]
     Active Substance: EPOPROSTENOL SODIUM
     Route: 042

REACTIONS (28)
  - Nausea [Unknown]
  - Liver transplant [Unknown]
  - Weight decreased [Unknown]
  - Device occlusion [Unknown]
  - Restless legs syndrome [Unknown]
  - Vomiting [Unknown]
  - Pain in jaw [Unknown]
  - Flushing [Unknown]
  - Abdominal pain upper [Unknown]
  - Transplant evaluation [Unknown]
  - Device malfunction [Unknown]
  - Musculoskeletal stiffness [Not Recovered/Not Resolved]
  - Device alarm issue [Unknown]
  - Therapy non-responder [Unknown]
  - Myalgia [Unknown]
  - Headache [Unknown]
  - Rash [Unknown]
  - Dyspnoea exertional [Not Recovered/Not Resolved]
  - Pain in extremity [Not Recovered/Not Resolved]
  - Transfusion [Unknown]
  - Dysstasia [Not Recovered/Not Resolved]
  - Constipation [Unknown]
  - Limb discomfort [Unknown]
  - Fatigue [Unknown]
  - Diarrhoea [Unknown]
  - Procedural pain [Not Recovered/Not Resolved]
  - Feeling cold [Not Recovered/Not Resolved]
  - Pain [Not Recovered/Not Resolved]

NARRATIVE: CASE EVENT DATE: 20200417
